FAERS Safety Report 12476703 (Version 2)
Quarter: 2016Q2

REPORT INFORMATION
  Report Type: Report from Study
  Country: GB (occurrence: GB)
  Receive Date: 20160617
  Receipt Date: 20160620
  Transmission Date: 20160815
  Serious: Yes (Hospitalization, Other)
  Sender: FDA-Public Use
  Company Number: GB-BRISTOL-MYERS SQUIBB COMPANY-BMS-2016-047176

PATIENT
  Age: 81 Year
  Sex: Female
  Weight: 73.9 kg

DRUGS (15)
  1. NIVOLUMAB [Suspect]
     Active Substance: NIVOLUMAB
     Dosage: 220 MG, UNK
     Route: 065
     Dates: start: 20151030, end: 20151030
  2. NIVOLUMAB [Suspect]
     Active Substance: NIVOLUMAB
     Dosage: 220 MG, UNK
     Route: 065
     Dates: start: 20160108, end: 20160108
  3. NIVOLUMAB [Suspect]
     Active Substance: NIVOLUMAB
     Dosage: 220 MG, UNK
     Route: 065
     Dates: start: 20151211, end: 20151211
  4. NIVOLUMAB [Suspect]
     Active Substance: NIVOLUMAB
     Dosage: 220 MG, UNK
     Route: 065
     Dates: start: 20151224, end: 20151224
  5. GENTAMICIN. [Concomitant]
     Active Substance: GENTAMICIN
     Indication: PRODUCT USED FOR UNKNOWN INDICATION
     Dosage: UNK
     Route: 042
     Dates: start: 20160609, end: 20160612
  6. VANCOMYCIN [Concomitant]
     Active Substance: VANCOMYCIN
     Indication: PRODUCT USED FOR UNKNOWN INDICATION
     Dosage: UNK
     Route: 042
     Dates: start: 20160609, end: 20160612
  7. NIVOLUMAB [Suspect]
     Active Substance: NIVOLUMAB
     Indication: METASTATIC MALIGNANT MELANOMA
     Dosage: 200 MG, UNK
     Route: 065
     Dates: start: 20151016, end: 20151016
  8. NIVOLUMAB [Suspect]
     Active Substance: NIVOLUMAB
     Dosage: 220 MG, UNK
     Route: 065
     Dates: start: 20160205, end: 20160205
  9. NIVOLUMAB [Suspect]
     Active Substance: NIVOLUMAB
     Dosage: 221.1 MG, UNK
     Route: 065
     Dates: start: 20160304, end: 20160304
  10. NIVOLUMAB [Suspect]
     Active Substance: NIVOLUMAB
     Dosage: 220 MG, UNK
     Route: 065
     Dates: start: 20160401, end: 20160401
  11. NIVOLUMAB [Suspect]
     Active Substance: NIVOLUMAB
     Dosage: 225 MG, UNK
     Route: 065
     Dates: start: 20160219, end: 20160219
  12. NIVOLUMAB [Suspect]
     Active Substance: NIVOLUMAB
     Dosage: 220 MG, UNK
     Route: 065
     Dates: start: 20151127, end: 20151127
  13. NIVOLUMAB [Suspect]
     Active Substance: NIVOLUMAB
     Dosage: 220 MG, UNK
     Route: 065
     Dates: start: 20160122, end: 20160122
  14. NIVOLUMAB [Suspect]
     Active Substance: NIVOLUMAB
     Dosage: 225 MG, UNK
     Route: 065
     Dates: start: 20160318, end: 20160318
  15. NIVOLUMAB [Suspect]
     Active Substance: NIVOLUMAB
     Dosage: 220 MG, UNK
     Route: 065
     Dates: start: 20151113, end: 20151113

REACTIONS (1)
  - Device related sepsis [Recovering/Resolving]

NARRATIVE: CASE EVENT DATE: 20160609
